FAERS Safety Report 6471386-1 (Version None)
Quarter: 2009Q4

REPORT INFORMATION
  Report Type: 
  Country: None (occurrence: None)
  Receive Date: 20091203
  Receipt Date: 20080422
  Transmission Date: 20100525
  Serious: Yes (Other)
  Sender: FDA-Public Use
  Company Number: US-ELI_LILLY_AND_COMPANY-US200802001256

PATIENT
  Sex: Male

DRUGS (9)
  1. HUMALOG [Suspect]
  2. TOPROL-XL [Concomitant]
     Dosage: 50 MG, DAILY (1/D)
  3. COUMADIN [Concomitant]
     Dosage: UNK, DAILY (1/D)
  4. PRILOSEC [Concomitant]
     Dosage: 20 MG, DAILY (1/D)
  5. NEURONTIN [Concomitant]
     Dosage: 300 MG, DAILY (1/D)
  6. LIPITOR [Concomitant]
     Dosage: 20 MG, DAILY (1/D)
  7. ZESTRIL [Concomitant]
     Dosage: 20 MG, 2/D
  8. FLOMAX [Concomitant]
     Dosage: 0.4 MG, DAILY (1/D)
  9. ASPIRIN [Concomitant]
     Dosage: 81 MG, DAILY (1/D)

REACTIONS (6)
  - BLINDNESS UNILATERAL [None]
  - BLOOD GLUCOSE INCREASED [None]
  - BRAIN INJURY [None]
  - CONCUSSION [None]
  - FALL [None]
  - VISUAL ACUITY REDUCED [None]
